FAERS Safety Report 8003607-8 (Version None)
Quarter: 2011Q4

REPORT INFORMATION
  Report Type: 
  Country: None (occurrence: None)
  Receive Date: 20111222
  Receipt Date: 20111215
  Transmission Date: 20120403
  Serious: Yes (Hospitalization)
  Sender: FDA-Public Use
  Company Number: JP-B.I. PHARMACEUTICALS,INC./RIDGEFIELD-2011-BP-28147NB

PATIENT
  Age: 89 Year
  Sex: Female

DRUGS (5)
  1. BONALON 35MG [Suspect]
     Route: 048
     Dates: start: 20060601
  2. LIPITOR [Concomitant]
     Dosage: 5 MG
     Route: 048
     Dates: start: 20060515
  3. CILOSTATE [Concomitant]
     Dosage: 200 MG
     Route: 048
     Dates: start: 20060515
  4. ASPIRIN [Concomitant]
     Dosage: 100 MG
     Route: 048
     Dates: start: 20060413
  5. MOBIC [Suspect]
     Dosage: 10 MG
     Route: 048
     Dates: start: 20070221

REACTIONS (5)
  - ENTEROCOLITIS [None]
  - DECREASED APPETITE [None]
  - DYSPNOEA [None]
  - HAEMOGLOBIN DECREASED [None]
  - PLATELET COUNT DECREASED [None]
